FAERS Safety Report 8443845 (Version 3)
Quarter: 2013Q2

REPORT INFORMATION
  Report Type: Report from Study
  Country: BE (occurrence: BE)
  Receive Date: 20120306
  Receipt Date: 20130418
  Transmission Date: 20140414
  Serious: Yes (Hospitalization)
  Sender: FDA-Public Use
  Company Number: BE-ROCHE-1013132

PATIENT
  Age: 76 Year
  Sex: Male
  Weight: 53 kg

DRUGS (6)
  1. RITUXIMAB [Suspect]
     Indication: B-CELL LYMPHOMA
     Dosage: NEXT DOSE DELAYED. LAST DOSE PRIOR TO SAE : 25 AUGUST 2011
     Route: 042
     Dates: start: 20110825
  2. PREDNISONE [Suspect]
     Indication: B-CELL LYMPHOMA
     Dosage: LAST DOSE PRIOR TO SAE : 29 AUGUST 2011
     Route: 048
     Dates: start: 20110825
  3. CYCLOPHOSPHAMIDE [Suspect]
     Indication: B-CELL LYMPHOMA
     Dosage: LAST DOSE PRIOR TO SAE : 25 AUGUST 2011
     Route: 042
     Dates: start: 20110825
  4. DOXORUBICIN [Suspect]
     Indication: B-CELL LYMPHOMA
     Dosage: LAST DOSE PRIOR TO SAE : 25 AUGUST 2011
     Route: 042
     Dates: start: 20110825
  5. VINCRISTINE [Suspect]
     Indication: B-CELL LYMPHOMA
     Dosage: LAST DOSE PRIOR TO SAE : 25 AUGUST 2011
     Route: 042
     Dates: start: 20110825
  6. PEGFILGRASTIM [Suspect]
     Indication: B-CELL LYMPHOMA
     Dosage: AST DOSE PRIOR TO SAE : 26 AUGUST 2011
     Route: 058
     Dates: start: 20110826

REACTIONS (3)
  - Small intestinal obstruction [Recovered/Resolved]
  - Abdominal pain [Unknown]
  - Small intestinal obstruction [Not Recovered/Not Resolved]
